FAERS Safety Report 7264949-7 (Version None)
Quarter: 2011Q1

REPORT INFORMATION
  Report Type: 
  Country: None (occurrence: None)
  Receive Date: 20110131
  Receipt Date: 20101220
  Transmission Date: 20110831
  Serious: Yes (Other)
  Sender: FDA-Public Use
  Company Number: US-BAYER-201034239NA

PATIENT
  Sex: Female

DRUGS (4)
  1. YAZ [Suspect]
     Indication: MENORRHAGIA
     Route: 048
     Dates: end: 20080901
  2. YASMIN [Suspect]
     Indication: DYSMENORRHOEA
  3. YAZ [Suspect]
     Indication: DYSMENORRHOEA
  4. YASMIN [Suspect]
     Indication: MENORRHAGIA

REACTIONS (2)
  - PAIN [None]
  - CEREBROVASCULAR ACCIDENT [None]
